FAERS Safety Report 5695926-5 (Version None)
Quarter: 2008Q2

REPORT INFORMATION
  Report Type: 
  Country: None (occurrence: None)
  Receive Date: 20080407
  Receipt Date: 20080407
  Transmission Date: 20081010
  Serious: Yes (Other)
  Sender: FDA-Public Use
  Company Number: A0721342A

PATIENT
  Age: 62 Year
  Sex: Male

DRUGS (1)
  1. TAGAMET HB 200 [Suspect]
     Route: 048

REACTIONS (5)
  - EXPIRED DRUG ADMINISTERED [None]
  - FLATULENCE [None]
  - MYOCARDIAL INFARCTION [None]
  - NAUSEA [None]
  - SWELLING [None]
